FAERS Safety Report 4866882-4 (Version None)
Quarter: 2005Q4

REPORT INFORMATION
  Report Type: 
  Country: None (occurrence: None)
  Receive Date: 20051222
  Receipt Date: 20051201
  Transmission Date: 20060501
  Serious: Yes (Other)
  Sender: FDA-Public Use
  Company Number: AU200512000681

PATIENT
  Age: 59 Year
  Sex: Female

DRUGS (4)
  1. ZYPREXA [Suspect]
     Indication: SCHIZOPHRENIA
     Dosage: 2.5 MG, DAILY (1/D)
     Dates: start: 20050101
  2. VALPROATE SODIUM [Concomitant]
  3. ENOXAPARIN SODIUM [Concomitant]
  4. WARFARIN SODIUM [Concomitant]

REACTIONS (3)
  - BREAST CANCER FEMALE [None]
  - DEEP VEIN THROMBOSIS [None]
  - POST PROCEDURAL COMPLICATION [None]
